FAERS Safety Report 17253952 (Version 1)
Quarter: 2020Q1

REPORT INFORMATION
  Report Type: Spontaneous
  Country: US (occurrence: US)
  Receive Date: 20200109
  Receipt Date: 20200109
  Transmission Date: 20200409
  Serious: Yes (Hospitalization)
  Sender: FDA-Public Use
  Company Number: US-TEVA-2020-US-1166306

PATIENT
  Age: 74 Year
  Sex: Male
  Weight: 79 kg

DRUGS (17)
  1. FLORINEF ACETATE [Concomitant]
     Active Substance: FLUDROCORTISONE ACETATE
  2. OXYCODONE [Concomitant]
     Active Substance: OXYCODONE
  3. NORCO [Concomitant]
     Active Substance: ACETAMINOPHEN\HYDROCODONE BITARTRATE
  4. ZOVIRAX [Concomitant]
     Active Substance: ACYCLOVIR
     Route: 065
  5. LIPITOR [Concomitant]
     Active Substance: ATORVASTATIN CALCIUM
     Route: 065
  6. DELTASONE [Concomitant]
     Active Substance: PREDNISONE
  7. PRILOSEC [Concomitant]
     Active Substance: OMEPRAZOLE MAGNESIUM
  8. VIAGRA [Concomitant]
     Active Substance: SILDENAFIL CITRATE
  9. TOBREX [Concomitant]
     Active Substance: TOBRAMYCIN
     Route: 065
  10. ASG-22CE [Concomitant]
     Active Substance: ENFORTUMAB VEDOTIN
     Indication: TRANSITIONAL CELL CARCINOMA
     Dosage: DAYS 8 AND 15 OF 28 CYCLE
     Route: 042
     Dates: start: 20190719, end: 20191122
  11. LASIX [Concomitant]
     Active Substance: FUROSEMIDE
  12. FLOMAX [Concomitant]
     Active Substance: TAMSULOSIN HYDROCHLORIDE
  13. LOSARTAN. [Suspect]
     Active Substance: LOSARTAN
     Indication: HYPERTENSION
     Dosage: 50 MILLIGRAM DAILY;
     Route: 048
     Dates: start: 20141121
  14. ASPIRIN. [Concomitant]
     Active Substance: ASPIRIN
  15. DAPSONE. [Concomitant]
     Active Substance: DAPSONE
     Route: 065
  16. TIKOSYN [Concomitant]
     Active Substance: DOFETILIDE
  17. ATIVAN [Concomitant]
     Active Substance: LORAZEPAM

REACTIONS (2)
  - Loss of consciousness [Unknown]
  - Hyponatraemia [Recovered/Resolved]

NARRATIVE: CASE EVENT DATE: 20191121
